FAERS Safety Report 16561337 (Version 1)
Quarter: 2019Q3

REPORT INFORMATION
  Report Type: Spontaneous
  Country: HT (occurrence: HT)
  Receive Date: 20190711
  Receipt Date: 20190711
  Transmission Date: 20191004
  Serious: Yes (Hospitalization, Other)
  Sender: FDA-Public Use
  Company Number: HT-IMPAX LABORATORIES, LLC-2016-IPXL-02413

PATIENT
  Age: 13 Year
  Sex: Male

DRUGS (2)
  1. ALBENZA [Suspect]
     Active Substance: ALBENDAZOLE
     Indication: FILARIASIS LYMPHATIC
     Dosage: 400 MILLIGRAM, SINGLE
     Route: 048
     Dates: start: 20161209, end: 20161209
  2. DIETHYLCARBAMAZINE [Suspect]
     Active Substance: DIETHYLCARBAMAZINE
     Indication: FILARIASIS LYMPHATIC
     Dosage: 6 MILLIGRAM/KILOGRAM, SINGLE
     Route: 048
     Dates: start: 20161209, end: 20161209

REACTIONS (9)
  - Asthenia [Recovered/Resolved]
  - Helicobacter infection [Recovered/Resolved]
  - Vomiting [Recovered/Resolved]
  - Product use in unapproved indication [Unknown]
  - Helminthic infection [Recovered/Resolved]
  - Myalgia [Recovered/Resolved]
  - Ascariasis [Recovered/Resolved]
  - Abdominal pain [Recovered/Resolved]
  - Nausea [Recovered/Resolved]

NARRATIVE: CASE EVENT DATE: 20161209
